FAERS Safety Report 15301118 (Version 5)
Quarter: 2018Q4

REPORT INFORMATION
  Report Type: Spontaneous
  Country: US (occurrence: US)
  Receive Date: 20180821
  Receipt Date: 20181203
  Transmission Date: 20190204
  Serious: Yes (Other)
  Sender: FDA-Public Use
  Company Number: US-PFIZER INC-2018334715

PATIENT
  Sex: Female

DRUGS (5)
  1. ADVIL LIQUI-GELS [Suspect]
     Active Substance: IBUPROFEN
     Dosage: 800 MG, ONCE A DAY
     Dates: start: 201808
  2. ADVIL LIQUI-GELS [Suspect]
     Active Substance: IBUPROFEN
     Indication: HEADACHE
     Dosage: UNK, ONCE A DAY AS NEEDED
  3. ADVIL LIQUI-GELS [Suspect]
     Active Substance: IBUPROFEN
     Dosage: 800 MG, TWICE A DAY (SOME DAYS)
  4. TYLENOL [Suspect]
     Active Substance: ACETAMINOPHEN
     Dosage: UNK
  5. ADVIL LIQUI-GELS [Suspect]
     Active Substance: IBUPROFEN
     Dosage: 600 MG, ONCE A DAY (3 OF 200 MG LIQUI-GELS)
     Dates: start: 201807

REACTIONS (8)
  - Overdose [Unknown]
  - Product quality issue [Recovered/Resolved]
  - Product use issue [Unknown]
  - Poor quality product administered [Recovered/Resolved]
  - Product physical issue [Recovered/Resolved]
  - Drug ineffective [Unknown]
  - Haemorrhoids [Unknown]
  - Product storage error [Unknown]

NARRATIVE: CASE EVENT DATE: 201807
